FAERS Safety Report 4623085-6 (Version None)
Quarter: 2005Q1

REPORT INFORMATION
  Report Type: 
  Country: None (occurrence: None)
  Receive Date: 20050328
  Receipt Date: 20050328
  Transmission Date: 20050727
  Serious: Yes (Disabling)
  Sender: FDA-Public Use
  Company Number: None

PATIENT
  Age: 74 Year
  Sex: Male
  Weight: 70.7611 kg

DRUGS (2)
  1. LEVAQUIN [Suspect]
     Dosage: 1  PER DAY   ORAL
     Route: 048
     Dates: start: 20050214, end: 20050323
  2. AGGRENOX [Concomitant]

REACTIONS (3)
  - ARTHRALGIA [None]
  - MUSCLE INJURY [None]
  - TENDON DISORDER [None]
